FAERS Safety Report 5027863-3 (Version None)
Quarter: 2006Q2

REPORT INFORMATION
  Report Type: 
  Country: None (occurrence: None)
  Receive Date: 20060616
  Receipt Date: 20060509
  Transmission Date: 20061013
  Serious: Yes (Hospitalization)
  Sender: FDA-Public Use
  Company Number: US-ROCHE-447419

PATIENT
  Age: 51 Year
  Sex: Male
  Weight: 64 kg

DRUGS (8)
  1. PEG-INTERFERON A-2A (RO 25-8310) [Suspect]
     Route: 058
     Dates: start: 20050318, end: 20060210
  2. RIBAVIRIN [Suspect]
     Route: 048
     Dates: start: 20050318, end: 20060213
  3. IBUPROFEN [Concomitant]
     Indication: BACK PAIN
     Dates: start: 20040615
  4. VENLAFAXINE HCL [Concomitant]
     Indication: DEPRESSION
     Dates: start: 20051121
  5. TADALAFIL [Concomitant]
     Indication: ERECTILE DYSFUNCTION
     Dates: start: 20051121
  6. ZOLPIDEM TARTRATE [Concomitant]
     Indication: INSOMNIA
     Dates: start: 20050511
  7. ALTACE [Concomitant]
     Indication: HYPERTENSION
     Dates: start: 20060404
  8. WELLBUTRIN [Concomitant]
     Route: 048

REACTIONS (7)
  - ABDOMINAL DISTENSION [None]
  - DRUG ABUSER [None]
  - INTERVERTEBRAL DISC DISORDER [None]
  - NEUROGENIC BLADDER [None]
  - PARALYSIS [None]
  - SPINAL CORD INFARCTION [None]
  - SYRINGOMYELIA [None]
